FAERS Safety Report 4581791-6 (Version None)
Quarter: 2005Q1

REPORT INFORMATION
  Report Type: 
  Country: None (occurrence: None)
  Receive Date: 20050214
  Receipt Date: 20040302
  Transmission Date: 20050727
  Serious: Yes (Other)
  Sender: FDA-Public Use
  Company Number: US-GLAXOSMITHKLINE-A0501099A

PATIENT
  Age: 43 Year
  Sex: Male

DRUGS (4)
  1. LAMICTAL [Suspect]
     Indication: BIPOLAR DISORDER
     Dosage: 25MG PER DAY
     Route: 048
     Dates: start: 20040204, end: 20040206
  2. OPIATES [Suspect]
  3. WELLBUTRIN [Concomitant]
     Dosage: 100MG PER DAY
     Route: 048
     Dates: start: 20040204
  4. TRANXENE [Concomitant]
     Dosage: 7.5MG AS REQUIRED
     Route: 048
     Dates: start: 20040204

REACTIONS (1)
  - CONSTIPATION [None]
